FAERS Safety Report 25676609 (Version 1)
Quarter: 2025Q3

REPORT INFORMATION
  Report Type: Spontaneous
  Country: CA (occurrence: None)
  Receive Date: 20250813
  Receipt Date: 20250813
  Transmission Date: 20251021
  Serious: Yes (Death)
  Sender: ALEXION PHARMACEUTICALS
  Company Number: None

PATIENT
  Age: 77 Year
  Sex: Male

DRUGS (16)
  1. BRILINTA [Suspect]
     Active Substance: TICAGRELOR
     Indication: Thrombosis prophylaxis
  2. ACETAMINOPHEN [Concomitant]
     Active Substance: ACETAMINOPHEN
  3. ARANESP [Concomitant]
     Active Substance: DARBEPOETIN ALFA
  4. ASPIRIN [Concomitant]
     Active Substance: ASPIRIN
  5. ATORVASTATIN [Concomitant]
     Active Substance: ATORVASTATIN
  6. CALCITRIOL [Concomitant]
     Active Substance: CALCITRIOL
  7. CALCIUM CARBONATE [Concomitant]
     Active Substance: CALCIUM CARBONATE
  8. COLCHICINE [Concomitant]
     Active Substance: COLCHICINE
  9. DOCUSATE SODIUM [Concomitant]
     Active Substance: DOCUSATE SODIUM
  10. ENOXAPARIN [Concomitant]
     Active Substance: ENOXAPARIN
  11. METOPROLOL [Concomitant]
     Active Substance: METOPROLOL
  12. NIFEDIPINE [Concomitant]
     Active Substance: NIFEDIPINE
  13. NITROGLYCERIN [Concomitant]
     Active Substance: NITROGLYCERIN
  14. PANTOPRAZOLE [Concomitant]
     Active Substance: PANTOPRAZOLE
  15. SEVELAMER [Concomitant]
     Active Substance: SEVELAMER
  16. SYNTHROID [Concomitant]
     Active Substance: LEVOTHYROXINE SODIUM

REACTIONS (6)
  - Vomiting [Fatal]
  - Cerebral haemorrhage [Fatal]
  - Confusional state [Fatal]
  - Hydrocephalus [Fatal]
  - Hyperhidrosis [Fatal]
  - Intraventricular haemorrhage [Fatal]
